FAERS Safety Report 6571695-1 (Version None)
Quarter: 2010Q1

REPORT INFORMATION
  Report Type: 
  Country: None (occurrence: None)
  Receive Date: 20100205
  Receipt Date: 20100128
  Transmission Date: 20100710
  Serious: Yes (Hospitalization)
  Sender: FDA-Public Use
  Company Number: IE-MEDIMMUNE-MEDI-0009808

PATIENT
  Sex: Male

DRUGS (2)
  1. SYNAGIS [Suspect]
     Route: 030
     Dates: start: 20091102, end: 20091102
  2. INFLUENZA VIRUS VACCINE MONOVALENT [Suspect]
     Dates: start: 20091103, end: 20091103

REACTIONS (3)
  - NASAL CONGESTION [None]
  - RESPIRATORY TRACT CONGESTION [None]
  - WHEEZING [None]
